FAERS Safety Report 16276670 (Version 1)
Quarter: 2019Q2

REPORT INFORMATION
  Report Type: Spontaneous
  Country: US (occurrence: US)
  Receive Date: 20190505
  Receipt Date: 20190505
  Transmission Date: 20190711
  Serious: Yes (Other)
  Sender: FDA-Public Use
  Company Number: None

PATIENT
  Age: 40 Year
  Sex: Female
  Weight: 63 kg

DRUGS (7)
  1. AMERGE [Concomitant]
     Active Substance: NARATRIPTAN HYDROCHLORIDE
  2. CALCIUM [Concomitant]
     Active Substance: CALCIUM
  3. BIOTIN [Concomitant]
     Active Substance: BIOTIN
  4. MAGNESIUM [Concomitant]
     Active Substance: MAGNESIUM
  5. COQ10 [Concomitant]
     Active Substance: UBIDECARENONE
  6. AIMOVIG [Suspect]
     Active Substance: ERENUMAB-AOOE
     Indication: MIGRAINE
     Dosage: ?          OTHER FREQUENCY:ONCE PER MONTH;?
     Route: 058
     Dates: start: 20190205, end: 20190406
  7. MULTI VITAMIN [Concomitant]
     Active Substance: VITAMINS

REACTIONS (1)
  - Alopecia [None]

NARRATIVE: CASE EVENT DATE: 20190301
